FAERS Safety Report 7482709-9 (Version None)
Quarter: 2011Q2

REPORT INFORMATION
  Report Type: 
  Country: None (occurrence: None)
  Receive Date: 20110516
  Receipt Date: 20100222
  Transmission Date: 20111010
  Serious: Yes (Other)
  Sender: FDA-Public Use
  Company Number: PHHY2010DE10401

PATIENT
  Sex: Female

DRUGS (2)
  1. EXTAVIA [Suspect]
     Indication: MULTIPLE SCLEROSIS
     Dosage: 250 UG/ML, QOD
     Route: 058
     Dates: start: 20100122, end: 20100128
  2. EXTAVIA [Suspect]
     Dosage: 0.5 ML, QOD
     Route: 058
     Dates: start: 20100130, end: 20100201

REACTIONS (2)
  - DEPRESSION [None]
  - PALPITATIONS [None]
